FAERS Safety Report 5466982-4 (Version None)
Quarter: 2007Q3

REPORT INFORMATION
  Report Type: 
  Country: None (occurrence: None)
  Receive Date: 20070921
  Receipt Date: 20070921
  Transmission Date: 20080115
  Serious: Yes (Hospitalization)
  Sender: FDA-Public Use
  Company Number: None

PATIENT
  Age: 59 Year
  Sex: Male
  Weight: 63.1407 kg

DRUGS (11)
  1. DOCETAXEL [Suspect]
     Indication: NEOPLASM MALIGNANT
     Dosage: 25 ,G/M2 IV Q0 WEEK
     Route: 042
  2. FLUOROURACIL [Suspect]
     Indication: NEOPLASM MALIGNANT
     Dosage: 600 MG/M2.D X5 D IV
     Route: 042
  3. MULTI-VITAMIN [Concomitant]
  4. DILTIAZEM [Concomitant]
  5. METOPROLOL [Concomitant]
  6. ALLOPURINOL [Concomitant]
  7. PROCHOLOPERAZINE [Concomitant]
  8. ATROPINE [Concomitant]
  9. HYDROCODONE [Concomitant]
  10. LOPERAMIDE HCL [Concomitant]
  11. GLYBURIDE [Concomitant]

REACTIONS (5)
  - CLOSTRIDIUM DIFFICILE COLITIS [None]
  - FEBRILE NEUTROPENIA [None]
  - MUCOSAL INFLAMMATION [None]
  - PHARYNGOLARYNGEAL PAIN [None]
  - STOMATITIS [None]
